FAERS Safety Report 6062516-4 (Version None)
Quarter: 2009Q1

REPORT INFORMATION
  Report Type: 
  Country: None (occurrence: None)
  Receive Date: 20090202
  Receipt Date: 20090202
  Transmission Date: 20090719
  Serious: Yes (Hospitalization)
  Sender: FDA-Public Use
  Company Number: None

PATIENT
  Age: 29 Year
  Sex: Female

DRUGS (5)
  1. ZOFRAN [Suspect]
     Indication: NAUSEA
     Dosage: 4 MG X 1 TIME IV BOLUS
     Route: 040
     Dates: start: 20080922, end: 20080922
  2. HUMILIN N [Concomitant]
  3. PROTONIX [Concomitant]
  4. PERCOCET [Concomitant]
  5. DIATX ZN [Concomitant]

REACTIONS (2)
  - INFUSION SITE ERYTHEMA [None]
  - INFUSION SITE SWELLING [None]
